FAERS Safety Report 23630416 (Version 3)
Quarter: 2025Q1

REPORT INFORMATION
  Report Type: Report from Study
  Country: US (occurrence: US)
  Receive Date: 20240314
  Receipt Date: 20250310
  Transmission Date: 20250408
  Serious: Yes (Other)
  Sender: UCB
  Company Number: US-UCBSA-2024011852

PATIENT
  Sex: Female
  Weight: 40.8 kg

DRUGS (3)
  1. FINTEPLA [Suspect]
     Active Substance: FENFLURAMINE
     Indication: Lennox-Gastaut syndrome
     Dates: start: 202110
  2. FINTEPLA [Suspect]
     Active Substance: FENFLURAMINE
     Dosage: 3 MILLILITER, 2X/DAY (BID)
     Dates: start: 20220129
  3. FINTEPLA [Suspect]
     Active Substance: FENFLURAMINE
     Dates: start: 2022

REACTIONS (1)
  - Seizure [Not Recovered/Not Resolved]
